FAERS Safety Report 13429263 (Version 1)
Quarter: 2017Q2

REPORT INFORMATION
  Report Type: Other
  Country: US (occurrence: US)
  Receive Date: 20170411
  Receipt Date: 20170411
  Transmission Date: 20170830
  Serious: No
  Sender: FDA-Public Use
  Company Number: US-ALSI-201700105

PATIENT
  Age: 24 Year
  Sex: Male

DRUGS (2)
  1. MEDICAL OXYGEN [Suspect]
     Active Substance: OXYGEN
     Indication: FROSTBITE
     Route: 003
  2. PIPERACILLIN AND TAZOBACTAM [Concomitant]
     Active Substance: PIPERACILLIN SODIUM\TAZOBACTAM SODIUM

REACTIONS (2)
  - No adverse event [None]
  - Off label use [None]
